FAERS Safety Report 6329855-0 (Version None)
Quarter: 2009Q3

REPORT INFORMATION
  Report Type: 
  Country: None (occurrence: None)
  Receive Date: 20090826
  Receipt Date: 20090820
  Transmission Date: 20100115
  Serious: Yes (Hospitalization, Other)
  Sender: FDA-Public Use
  Company Number: PHHO2009ES09639

PATIENT
  Sex: Male
  Weight: 87.2 kg

DRUGS (1)
  1. RAD 666 RAD+TAB [Suspect]
     Indication: METASTATIC RENAL CELL CARCINOMA
     Dosage: OPEN-LABEL
     Route: 048
     Dates: start: 20090708, end: 20090731

REACTIONS (2)
  - BLOOD UREA INCREASED [None]
  - DIARRHOEA [None]
